FAERS Safety Report 6240005-1 (Version None)
Quarter: 2009Q2

REPORT INFORMATION
  Report Type: 
  Country: None (occurrence: None)
  Receive Date: 20090623
  Receipt Date: 20090612
  Transmission Date: 20091009
  Serious: Yes (Hospitalization, Other)
  Sender: FDA-Public Use
  Company Number: PHHY2009JP19306

PATIENT
  Sex: Male
  Weight: 25 kg

DRUGS (2)
  1. TEGRETOL [Suspect]
     Indication: PARTIAL SEIZURES
     Dosage: 100 MG
     Route: 048
     Dates: start: 20090501, end: 20090514
  2. TEGRETOL [Suspect]
     Dosage: 150 MG
     Route: 048
     Dates: start: 20090515, end: 20090516

REACTIONS (8)
  - ASTHENIA [None]
  - BLOOD CALCIUM DECREASED [None]
  - BLOOD PHOSPHORUS DECREASED [None]
  - GENERAL PHYSICAL CONDITION ABNORMAL [None]
  - HEADACHE [None]
  - HISTIOCYTOSIS HAEMATOPHAGIC [None]
  - PYREXIA [None]
  - VOMITING [None]
